FAERS Safety Report 4719503-5 (Version None)
Quarter: 2005Q3

REPORT INFORMATION
  Report Type: 
  Country: None (occurrence: None)
  Receive Date: 20050719
  Receipt Date: 20050706
  Transmission Date: 20060218
  Serious: Yes (Other)
  Sender: FDA-Public Use
  Company Number: USA0507102092

PATIENT
  Age: 50 Year
  Sex: Female

DRUGS (4)
  1. ALIMTA [Suspect]
     Indication: LUNG NEOPLASM MALIGNANT
     Dates: start: 20050101
  2. DEXAMETHASONE [Concomitant]
  3. FOLIC ACID [Concomitant]
  4. VITAMIN B-12 [Concomitant]

REACTIONS (3)
  - LOCAL SWELLING [None]
  - RASH ERYTHEMATOUS [None]
  - SWELLING FACE [None]
